FAERS Safety Report 5849712-3 (Version None)
Quarter: 2008Q3

REPORT INFORMATION
  Report Type: 
  Country: None (occurrence: None)
  Receive Date: 20080818
  Receipt Date: 20080818
  Transmission Date: 20090109
  Serious: Yes (Death)
  Sender: FDA-Public Use
  Company Number: None

PATIENT
  Sex: Male
  Weight: 88.7 kg

DRUGS (11)
  1. TEMOZOLOMIDE [Suspect]
     Indication: GLIOBLASTOMA MULTIFORME
     Dosage: 200MG/M2 DAILY X 5 DAYS PO
     Route: 048
     Dates: start: 20071130, end: 20080602
  2. BEVACIZUMAB, GENENTECH [Suspect]
     Indication: GLIOBLASTOMA MULTIFORME
     Dosage: 10MG/KG Q 2 WEEKS IV
     Route: 042
     Dates: start: 20071204, end: 20080514
  3. ATIVAN [Concomitant]
  4. LIPITOR [Concomitant]
  5. LOPRESSOR [Concomitant]
  6. MAXIPIME [Concomitant]
  7. NEXIUM [Concomitant]
  8. PERCOCET [Concomitant]
  9. PHENYTOIN [Concomitant]
  10. VANCOMYCIN [Concomitant]
  11. ZOFRAN [Concomitant]

REACTIONS (11)
  - ASPERGILLOSIS [None]
  - CEREBROVASCULAR ACCIDENT [None]
  - CONFUSIONAL STATE [None]
  - CONVULSION [None]
  - HAEMORRHAGE [None]
  - HEADACHE [None]
  - PURULENCE [None]
  - SEPSIS [None]
  - THERMAL BURN [None]
  - UNRESPONSIVE TO STIMULI [None]
  - WOUND INFECTION [None]
